FAERS Safety Report 6768736-5 (Version None)
Quarter: 2010Q2

REPORT INFORMATION
  Report Type: 
  Country: None (occurrence: None)
  Receive Date: 20100614
  Receipt Date: 20100609
  Transmission Date: 20101027
  Serious: Yes (Death)
  Sender: FDA-Public Use
  Company Number: PHHY2010US37096

PATIENT
  Age: 54 Year
  Sex: Female

DRUGS (6)
  1. CYCLOSPORINE [Suspect]
     Indication: LUNG TRANSPLANT
  2. PREDNISONE [Suspect]
     Indication: LUNG TRANSPLANT
  3. AZATHIOPRINE [Suspect]
     Indication: LUNG TRANSPLANT
  4. TACROLIMUS [Suspect]
     Indication: LUNG TRANSPLANT
  5. SIROLIMUS [Suspect]
     Indication: LUNG TRANSPLANT
  6. VORICONAZOLE [Concomitant]
     Indication: ANTIFUNGAL PROPHYLAXIS
     Dosage: 200 MG, BID
     Route: 048

REACTIONS (10)
  - ACTINIC KERATOSIS [None]
  - HYPOAESTHESIA [None]
  - MUSCULAR WEAKNESS [None]
  - NEURECTOMY [None]
  - PAIN IN EXTREMITY [None]
  - PHOTODERMATOSIS [None]
  - SKIN CANCER [None]
  - SKIN NEOPLASM EXCISION [None]
  - SQUAMOUS CELL CARCINOMA [None]
  - SUBCUTANEOUS NODULE [None]
